FAERS Safety Report 9300711 (Version 1)
Quarter: 2013Q2

REPORT INFORMATION
  Report Type: Spontaneous
  Country: AU (occurrence: AU)
  Receive Date: 20130521
  Receipt Date: 20130521
  Transmission Date: 20140414
  Serious: Yes (Other)
  Sender: FDA-Public Use
  Company Number: AU-CELGENEUS-008-20785-13051122

PATIENT
  Sex: Female

DRUGS (1)
  1. THALIDOMIDE [Suspect]
     Indication: PLASMA CELL MYELOMA
     Route: 048

REACTIONS (3)
  - Suicide attempt [Unknown]
  - Intentional overdose [Unknown]
  - Psychotic disorder [Unknown]
